FAERS Safety Report 25196542 (Version 2)
Quarter: 2025Q2

REPORT INFORMATION
  Report Type: Spontaneous
  Country: CA (occurrence: CA)
  Receive Date: 20250415
  Receipt Date: 20250509
  Transmission Date: 20250717
  Serious: Yes (Death, Hospitalization)
  Sender: TEVA
  Company Number: CA-TEVA-VS-3319897

PATIENT
  Age: 65 Year
  Sex: Female

DRUGS (3)
  1. METHOTREXATE [Suspect]
     Active Substance: METHOTREXATE
     Indication: Psoriasis
     Dosage: INAPPROPRIATELY TAKING METHOTREXATE DAILY INSTEAD OF ONCE PER WEEK
     Route: 048
  2. FOLATE SODIUM [Concomitant]
     Active Substance: FOLATE SODIUM
     Indication: Vitamin supplementation
     Route: 065
  3. LEUCOVORIN [Suspect]
     Active Substance: LEUCOVORIN\LEUCOVORIN CALCIUM
     Indication: Epidermal necrosis
     Route: 065

REACTIONS (6)
  - Epidermal necrosis [Fatal]
  - Sepsis [Fatal]
  - Drug ineffective [Fatal]
  - Cardiovascular disorder [Fatal]
  - Inappropriate schedule of product administration [Fatal]
  - Haemodynamic instability [Fatal]
